FAERS Safety Report 15688621 (Version 1)
Quarter: 2018Q4

REPORT INFORMATION
  Report Type: Spontaneous
  Country: RU (occurrence: RU)
  Receive Date: 20181205
  Receipt Date: 20181205
  Transmission Date: 20190205
  Serious: Yes (Hospitalization, Other)
  Sender: FDA-Public Use
  Company Number: RU-ACCORD-094650

PATIENT
  Age: 82 Year
  Sex: Female

DRUGS (11)
  1. AMIODARONE [Interacting]
     Active Substance: AMIODARONE
     Indication: HEART RATE IRREGULAR
     Dates: start: 201801
  2. WARFARIN [Interacting]
     Active Substance: WARFARIN
     Indication: PRODUCT USED FOR UNKNOWN INDICATION
     Dates: start: 2017
  3. ETHYLMETHYLHYDROXYPYRIDINE SUCCINATE [Concomitant]
     Dates: end: 201801
  4. PENTAERITHRITYL TETRANITRATE [Concomitant]
     Active Substance: PENTAERYTHRITOL TETRANITRATE
     Indication: ANGINA PECTORIS
  5. ROSUVASTATIN. [Suspect]
     Active Substance: ROSUVASTATIN
     Indication: PRODUCT USED FOR UNKNOWN INDICATION
     Dates: start: 20171225, end: 20180124
  6. CLONAZEPAM. [Concomitant]
     Active Substance: CLONAZEPAM
     Indication: INSOMNIA
     Dates: end: 201712
  7. BISOPROLOL [Concomitant]
     Active Substance: BISOPROLOL
  8. PERINDOPRIL/PERINDOPRIL ERBUMINE [Concomitant]
  9. TORASEMIDE [Concomitant]
     Active Substance: TORSEMIDE
     Dosage: 2.5-5 MG
  10. AMLODIPINE [Concomitant]
     Active Substance: AMLODIPINE BESYLATE
  11. MOXONIDINE [Concomitant]
     Active Substance: MOXONIDINE

REACTIONS (3)
  - Haemorrhage [Recovered/Resolved]
  - Hypocoagulable state [Recovered/Resolved]
  - Drug interaction [Unknown]

NARRATIVE: CASE EVENT DATE: 201712
